FAERS Safety Report 5986246-X (Version None)
Quarter: 2008Q4

REPORT INFORMATION
  Report Type: 
  Country: None (occurrence: None)
  Receive Date: 20081209
  Receipt Date: 20081205
  Transmission Date: 20090506
  Serious: Yes (Hospitalization, Other)
  Sender: FDA-Public Use
  Company Number: SE-WYE-G01857608

PATIENT
  Sex: Female

DRUGS (1)
  1. TAZOCIN [Suspect]
     Indication: FOOT AMPUTATION
     Dosage: UNKNOWN
     Dates: start: 20080220, end: 20080226

REACTIONS (5)
  - ANURIA [None]
  - CARDIAC VALVE DISEASE [None]
  - CONDITION AGGRAVATED [None]
  - HAEMOLYTIC ANAEMIA [None]
  - RENAL IMPAIRMENT [None]
